FAERS Safety Report 7563976-X (Version None)
Quarter: 2011Q2

REPORT INFORMATION
  Report Type: 
  Country: None (occurrence: None)
  Receive Date: 20110622
  Receipt Date: 20110613
  Transmission Date: 20111010
  Serious: Yes (Other)
  Sender: FDA-Public Use
  Company Number: US-ROCHE-721898

PATIENT
  Sex: Female
  Weight: 52.2 kg

DRUGS (5)
  1. ACCUTANE [Suspect]
     Dosage: STRENGTH: 40 MG
     Route: 048
     Dates: start: 20060101, end: 20060704
  2. SOTRET [Suspect]
     Route: 065
     Dates: start: 20061101, end: 20061201
  3. ACCUTANE [Suspect]
     Dosage: STRENGTH: 20 MG
     Route: 048
     Dates: start: 20070115, end: 20070917
  4. BIRTH CONTROL PILL [Concomitant]
  5. AMNESTEEM [Suspect]
     Route: 065
     Dates: start: 20060701, end: 20061101

REACTIONS (14)
  - ABSCESS [None]
  - NASAL DRYNESS [None]
  - PLATELET COUNT INCREASED [None]
  - PAIN [None]
  - ANXIETY [None]
  - SCAR [None]
  - COLITIS ULCERATIVE [None]
  - DEPRESSION [None]
  - BLOOD TRIGLYCERIDES INCREASED [None]
  - RASH [None]
  - PHARYNGITIS STREPTOCOCCAL [None]
  - LIP DRY [None]
  - DRY SKIN [None]
  - INFLAMMATORY BOWEL DISEASE [None]
